FAERS Safety Report 21413726 (Version 1)
Quarter: 2022Q4

REPORT INFORMATION
  Report Type: Spontaneous
  Country: US (occurrence: US)
  Receive Date: 20221006
  Receipt Date: 20221006
  Transmission Date: 20230112
  Serious: No
  Sender: FDA-Public Use
  Company Number: US-ALLERGAN-2210542US

PATIENT
  Age: 62 Year
  Sex: Male

DRUGS (3)
  1. QULIPTA [Suspect]
     Active Substance: ATOGEPANT
     Indication: Product used for unknown indication
     Dosage: 10 MG
     Dates: start: 202207
  2. QULIPTA [Suspect]
     Active Substance: ATOGEPANT
     Dosage: UNK MG
     Dates: start: 20220307, end: 20220309
  3. QULIPTA [Suspect]
     Active Substance: ATOGEPANT
     Dosage: 30 MG
     Dates: start: 202202

REACTIONS (4)
  - Motion sickness [Recovered/Resolved]
  - Dizziness [Recovered/Resolved]
  - Nausea [Recovered/Resolved]
  - Drug ineffective [Unknown]

NARRATIVE: CASE EVENT DATE: 20220201
